FAERS Safety Report 15515280 (Version 1)
Quarter: 2018Q4

REPORT INFORMATION
  Report Type: Spontaneous
  Country: IT (occurrence: IT)
  Receive Date: 20181017
  Receipt Date: 20181017
  Transmission Date: 20190205
  Serious: Yes (Hospitalization)
  Sender: FDA-Public Use
  Company Number: IT-TEVA-2018-IT-964065

PATIENT
  Sex: Male

DRUGS (1)
  1. AMIKACINA TEVA [Suspect]
     Active Substance: AMIKACIN
     Dosage: 1G/4ML
     Route: 065
     Dates: end: 20181005

REACTIONS (4)
  - Musculoskeletal pain [Not Recovered/Not Resolved]
  - Agitation [Not Recovered/Not Resolved]
  - Tremor [Not Recovered/Not Resolved]
  - Dyspnoea [Not Recovered/Not Resolved]
